FAERS Safety Report 24598267 (Version 1)
Quarter: 2024Q4

REPORT INFORMATION
  Report Type: Spontaneous
  Country: FR (occurrence: FR)
  Receive Date: 20241110
  Receipt Date: 20241110
  Transmission Date: 20250115
  Serious: Yes (Life-Threatening, Hospitalization, Other)
  Sender: ALEXION PHARMACEUTICALS
  Company Number: FR-ASTRAZENECA-202410GLO029420FR

PATIENT
  Age: 72 Year
  Weight: 82.5 kg

DRUGS (30)
  1. DAPAGLIFLOZIN [Interacting]
     Active Substance: DAPAGLIFLOZIN
     Dosage: 1 DOSAGE FORM, QD
  2. DAPAGLIFLOZIN [Interacting]
     Active Substance: DAPAGLIFLOZIN
     Dosage: 1 DOSAGE FORM, QD
  3. DAPAGLIFLOZIN [Interacting]
     Active Substance: DAPAGLIFLOZIN
     Dosage: 1 DOSAGE FORM, QD
  4. DAPAGLIFLOZIN [Interacting]
     Active Substance: DAPAGLIFLOZIN
     Dosage: 1 DOSAGE FORM, QD
  5. RAMIPRIL [Interacting]
     Active Substance: RAMIPRIL
     Dosage: 1.25 MILLIGRAM, QD
  6. RAMIPRIL [Interacting]
     Active Substance: RAMIPRIL
     Dosage: 1.25 MILLIGRAM, QD
  7. RAMIPRIL [Interacting]
     Active Substance: RAMIPRIL
     Dosage: 1.25 MILLIGRAM, QD
  8. RAMIPRIL [Interacting]
     Active Substance: RAMIPRIL
     Dosage: 1.25 MILLIGRAM, QD
  9. RAMIPRIL [Interacting]
     Active Substance: RAMIPRIL
     Dosage: 2.5 MILLIGRAM, QD
  10. RAMIPRIL [Interacting]
     Active Substance: RAMIPRIL
     Dosage: 2.5 MILLIGRAM, QD
  11. RAMIPRIL [Interacting]
     Active Substance: RAMIPRIL
     Dosage: 2.5 MILLIGRAM, QD
  12. RAMIPRIL [Interacting]
     Active Substance: RAMIPRIL
     Dosage: 2.5 MILLIGRAM, QD
  13. FUROSEMIDE [Interacting]
     Active Substance: FUROSEMIDE
     Indication: Hypertension
     Dosage: 500 MILLIGRAM, QD
  14. FUROSEMIDE [Interacting]
     Active Substance: FUROSEMIDE
     Dosage: 500 MILLIGRAM, QD
  15. SPIRONOLACTONE [Interacting]
     Active Substance: SPIRONOLACTONE
     Dosage: 25 MILLIGRAM, QD
  16. SPIRONOLACTONE [Interacting]
     Active Substance: SPIRONOLACTONE
     Dosage: 25 MILLIGRAM, QD
  17. ATORVASTATIN [Concomitant]
     Active Substance: ATORVASTATIN
  18. ATORVASTATIN [Concomitant]
     Active Substance: ATORVASTATIN
  19. SITAGLIPTIN [Concomitant]
     Active Substance: SITAGLIPTIN
  20. SITAGLIPTIN [Concomitant]
     Active Substance: SITAGLIPTIN
  21. ELIQUIS [Concomitant]
     Active Substance: APIXABAN
  22. ELIQUIS [Concomitant]
     Active Substance: APIXABAN
  23. AMIODARONE [Concomitant]
     Active Substance: AMIODARONE
  24. AMIODARONE [Concomitant]
     Active Substance: AMIODARONE
  25. LANSOPRAZOLE [Concomitant]
     Active Substance: LANSOPRAZOLE
  26. LANSOPRAZOLE [Concomitant]
     Active Substance: LANSOPRAZOLE
  27. ALBUTEROL [Concomitant]
     Active Substance: ALBUTEROL
  28. ALBUTEROL [Concomitant]
     Active Substance: ALBUTEROL
  29. TRELEGY ELLIPTA [Concomitant]
     Active Substance: FLUTICASONE FUROATE\UMECLIDINIUM BROMIDE\VILANTEROL TRIFENATATE
  30. TRELEGY ELLIPTA [Concomitant]
     Active Substance: FLUTICASONE FUROATE\UMECLIDINIUM BROMIDE\VILANTEROL TRIFENATATE

REACTIONS (3)
  - Hypotension [Recovering/Resolving]
  - Hypovolaemic shock [Recovered/Resolved]
  - Drug interaction [Recovered/Resolved]
